FAERS Safety Report 10279353 (Version 2)
Quarter: 2014Q3

REPORT INFORMATION
  Report Type: Spontaneous
  Country: DE (occurrence: DE)
  Receive Date: 20140707
  Receipt Date: 20140730
  Transmission Date: 20150326
  Serious: Yes (Hospitalization)
  Sender: FDA-Public Use
  Company Number: DE-UCBSA-2014004055

PATIENT
  Age: 77 Year
  Sex: Female

DRUGS (8)
  1. NEUPRO [Suspect]
     Active Substance: ROTIGOTINE
     Indication: PARKINSON^S DISEASE
     Dosage: 2 MG, ONCE DAILY (QD)
  2. AMANTADINE [Concomitant]
     Active Substance: AMANTADINE
     Dosage: 100 MG
  3. LEVODOPA BENSERAZIDE [Concomitant]
     Active Substance: BENSERAZIDE\LEVODOPA
     Dosage: 100 MG, RETARD RELEASE
  4. MOTILIUM [Concomitant]
     Active Substance: DOMPERIDONE
     Dosage: 1 BAG
  5. NEUPRO [Suspect]
     Active Substance: ROTIGOTINE
     Dosage: 6 MG, ONCE DAILY (QD)
  6. MOVICOL [Concomitant]
     Active Substance: POLYETHYLENE GLYCOL 3350\POTASSIUM CHLORIDE\SODIUM BICARBONATE\SODIUM CHLORIDE
     Dosage: 1 BAG
  7. AZILECT [Concomitant]
     Active Substance: RASAGILINE MESYLATE
     Dosage: 1 MG
  8. COMTESS [Concomitant]
     Active Substance: ENTACAPONE
     Dosage: 200 MG

REACTIONS (5)
  - Dehydration [Unknown]
  - Immobile [Unknown]
  - Confusional state [Unknown]
  - Fall [Unknown]
  - Parkinson^s disease [Recovered/Resolved]
